FAERS Safety Report 5097253-6 (Version None)
Quarter: 2006Q3

REPORT INFORMATION
  Report Type: 
  Country: None (occurrence: None)
  Receive Date: 20060901
  Receipt Date: 20060828
  Transmission Date: 20061208
  Serious: Yes (Other)
  Sender: FDA-Public Use
  Company Number: TCI2006A03409

PATIENT
  Age: 71 Year
  Sex: Male

DRUGS (6)
  1. LANSOPRAZOLE [Suspect]
     Indication: BLOOD CREATINE PHOSPHOKINASE INCREASED
     Dosage: 15 MG (15 MG, 1 IN 1 D), PER ORAL
     Route: 048
     Dates: start: 20060616, end: 20060713
  2. LANSOPRAZOLE [Suspect]
     Indication: REFLUX OESOPHAGITIS
     Dosage: 15 MG (15 MG, 1 IN 1 D), PER ORAL
     Route: 048
     Dates: start: 20060616, end: 20060713
  3. BUFFERIN [Concomitant]
  4. TICLOPIDINE HCL [Concomitant]
  5. DILTIAZEM HYDROCHLORIDE [Concomitant]
  6. MUCOSTA (REBAMIPIDE) [Concomitant]

REACTIONS (2)
  - BLOOD CREATINE PHOSPHOKINASE INCREASED [None]
  - BLOOD CREATINE PHOSPHOKINASE MB INCREASED [None]
